FAERS Safety Report 9355317 (Version 5)
Quarter: 2013Q3

REPORT INFORMATION
  Report Type: Report from Study
  Country: NL (occurrence: NL)
  Receive Date: 20130619
  Receipt Date: 20130814
  Transmission Date: 20140515
  Serious: Yes (Life-Threatening)
  Sender: FDA-Public Use
  Company Number: NL-GENZYME-CLOF-1002683

PATIENT
  Age: 42 Year
  Sex: Female
  Weight: 64 kg

DRUGS (3)
  1. EVOLTRA [Suspect]
     Indication: ACUTE MYELOID LEUKAEMIA
     Dosage: 18 MG, UNK
     Route: 042
     Dates: start: 20130531, end: 20130604
  2. CYTARABINE [Suspect]
     Indication: ACUTE MYELOID LEUKAEMIA
     Dosage: 366 MG, UNK
     Route: 042
     Dates: start: 20130531, end: 20130606
  3. IDARUBICIN [Suspect]
     Indication: ACUTE MYELOID LEUKAEMIA
     Dosage: 21.96 MG, UNK
     Route: 042
     Dates: start: 20130531, end: 20130602

REACTIONS (1)
  - Syncope [Recovered/Resolved]
